FAERS Safety Report 8540856-4 (Version None)
Quarter: 2012Q3

REPORT INFORMATION
  Report Type: 
  Country: None (occurrence: None)
  Receive Date: 20120726
  Receipt Date: 20120719
  Transmission Date: 20120928
  Serious: Yes (Hospitalization, Other)
  Sender: FDA-Public Use
  Company Number: FR-NAPPMUNDI-GBR-2012-0011049

PATIENT
  Sex: Female

DRUGS (13)
  1. OXYCODONE HCL [Suspect]
     Indication: FRACTURE PAIN
     Dosage: 10 MG, TID
     Route: 048
     Dates: start: 20120210
  2. OXYCODONE HCL [Suspect]
     Dosage: 5 MG, Q4H
     Route: 048
     Dates: start: 20120215
  3. SMECTA                             /00837601/ [Concomitant]
     Dosage: 1 DF, TID
     Route: 048
  4. FUROSEMIDE [Concomitant]
     Dosage: 40 MG, 1 AND HALF TABLET DAILY
     Route: 048
  5. LANTUS [Concomitant]
     Dosage: 28 IU, UNK
  6. HYDROCORTISONE [Concomitant]
     Dosage: 10 MG, BID
     Route: 048
  7. VITAMIN D [Concomitant]
     Dosage: 100000 IU/2 ML
  8. VITABACT [Concomitant]
     Dosage: 1 DROP, TID
     Route: 047
  9. LEVOTHYROXINE SODIUM [Concomitant]
     Dosage: 50 MCG, DAILY
     Route: 048
  10. TRANSIPEG                          /01618701/ [Concomitant]
     Dosage: 2 PACKET, DAILY
     Route: 048
  11. BRICANYL [Concomitant]
     Dosage: 3 PUFF, DAILY
     Route: 055
  12. ACETAMINOPHEN [Concomitant]
     Dosage: 1000 MG, TID
     Route: 048
  13. VITAMINE C [Concomitant]
     Dosage: UNK
     Route: 048

REACTIONS (2)
  - PNEUMONIA ASPIRATION [None]
  - DEPRESSED LEVEL OF CONSCIOUSNESS [None]
